FAERS Safety Report 25614568 (Version 1)
Quarter: 2025Q3

REPORT INFORMATION
  Report Type: Spontaneous
  Country: US (occurrence: US)
  Receive Date: 20250729
  Receipt Date: 20250729
  Transmission Date: 20251020
  Serious: Yes (Other)
  Sender: MERCK SHARP & DOHME LLC
  Company Number: US-009507513-2307470

PATIENT

DRUGS (1)
  1. VERICIGUAT [Suspect]
     Active Substance: VERICIGUAT
     Indication: Cardiac failure chronic
     Dosage: EVERY 1 DAY (QD)
     Route: 048
     Dates: start: 2024, end: 2025

REACTIONS (2)
  - Pancytopenia [Unknown]
  - Anaemia [Recovered/Resolved]
